FAERS Safety Report 8075760-1 (Version None)
Quarter: 2012Q1

REPORT INFORMATION
  Report Type: 
  Country: None (occurrence: None)
  Receive Date: 20120117
  Receipt Date: 20120111
  Transmission Date: 20120608
  Serious: Yes (Other)
  Sender: FDA-Public Use
  Company Number: TPO2011A03219

PATIENT
  Age: 42 Year
  Sex: Male

DRUGS (10)
  1. BERLINSULIN H NORMAL (INSULIN) [Concomitant]
  2. LANTUS [Concomitant]
  3. JODETTEN (POTTASIUM IODIDE) [Concomitant]
  4. SEVIKAR (OLMESARTAN MEDOXOMIL) [Concomitant]
  5. VICTOZA [Concomitant]
  6. ATORVASTATIN [Concomitant]
  7. COMPETACT (PIOGLITAZONE HYDROCHLORIDE, METFORMIN HDROCHLORIDE) [Suspect]
     Indication: INSULIN RESISTANCE
     Dosage: 15/850 MG; PER ORAL
     Route: 048
     Dates: start: 20080201
  8. COMPETACT (PIOGLITAZONE HYDROCHLORIDE, METFORMIN HDROCHLORIDE) [Suspect]
     Indication: TYPE 2 DIABETES MELLITUS
     Dosage: 15/850 MG; PER ORAL
     Route: 048
     Dates: start: 20080201
  9. ALLOPURINOL [Concomitant]
  10. SEVIKAR (AMLODIPINE) [Concomitant]

REACTIONS (1)
  - RETINAL VEIN OCCLUSION [None]
